FAERS Safety Report 5590058-9 (Version None)
Quarter: 2008Q1

REPORT INFORMATION
  Report Type: 
  Country: None (occurrence: None)
  Receive Date: 20080114
  Receipt Date: 20080107
  Transmission Date: 20080703
  Serious: Yes (Life-Threatening, Disabling, Other)
  Sender: FDA-Public Use
  Company Number: US-ELI_LILLY_AND_COMPANY-US200712001789

PATIENT
  Sex: Male
  Weight: 97.052 kg

DRUGS (9)
  1. CYMBALTA [Suspect]
     Dosage: 30 MG, DAILY (1/D)
     Dates: start: 20071119, end: 20070101
  2. CYMBALTA [Suspect]
     Dosage: 60 MG, DAILY (1/D)
     Dates: start: 20070101, end: 20070101
  3. CYMBALTA [Suspect]
     Dosage: 120 MG, DAILY (1/D)
     Dates: start: 20070101, end: 20070101
  4. CYMBALTA [Suspect]
     Dosage: 90 MG, DAILY (1/D)
     Dates: start: 20071207
  5. CELEXA [Concomitant]
     Dosage: 140 MG, DAILY (1/D)
  6. ALPRAZOLAM [Concomitant]
     Dosage: 0.5 MG, AS NEEDED
  7. FLEXERIL [Concomitant]
     Dosage: 10 MG, AS NEEDED
  8. PERCOCET [Concomitant]
     Indication: PAIN
     Dosage: 5 MG, AS NEEDED
  9. COENZYME Q10 [Concomitant]

REACTIONS (11)
  - AGITATION [None]
  - ANXIETY [None]
  - CONSTIPATION [None]
  - DEPRESSION [None]
  - DRY MOUTH [None]
  - INSOMNIA [None]
  - IRRITABILITY [None]
  - NAUSEA [None]
  - PAIN [None]
  - PANIC ATTACK [None]
  - SUICIDAL IDEATION [None]
